FAERS Safety Report 8889351 (Version 1)
Quarter: 2012Q4

REPORT INFORMATION
  Report Type: Spontaneous
  Country: US (occurrence: None)
  Receive Date: 20121102
  Receipt Date: 20121102
  Transmission Date: 20130627
  Serious: No
  Sender: FDA-Public Use
  Company Number: None

PATIENT
  Age: 31 Year
  Sex: Male
  Weight: 89.81 kg

DRUGS (2)
  1. VIIBRYD [Suspect]
     Indication: DEPRESSION
     Dates: start: 20120714, end: 20121027
  2. VIIBRYD [Suspect]
     Indication: DEPRESSION
     Dates: start: 20121027, end: 20121027

REACTIONS (2)
  - Libido decreased [None]
  - Erectile dysfunction [None]
